FAERS Safety Report 19326790 (Version 2)
Quarter: 2021Q2

REPORT INFORMATION
  Report Type: Spontaneous
  Country: DE (occurrence: DE)
  Receive Date: 20210528
  Receipt Date: 20210604
  Transmission Date: 20210717
  Serious: Yes (Death, Life-Threatening, Other)
  Sender: FDA-Public Use
  Company Number: DE-PFIZER INC-2021585672

PATIENT
  Age: 31 Year
  Sex: Female

DRUGS (1)
  1. HEPARIN SODIUM. [Suspect]
     Active Substance: HEPARIN SODIUM
     Indication: THROMBOSIS PROPHYLAXIS
     Dosage: 5000 IU (3X5,000 IU NA HEPARIN SC)
     Route: 058

REACTIONS (4)
  - Intracranial pressure increased [Fatal]
  - Thrombocytopenia [Unknown]
  - Superior sagittal sinus thrombosis [Unknown]
  - Nerve compression [Fatal]
